FAERS Safety Report 24268708 (Version 1)
Quarter: 2024Q3

REPORT INFORMATION
  Report Type: Spontaneous
  Country: US (occurrence: None)
  Receive Date: 20240829
  Receipt Date: 20240829
  Transmission Date: 20241016
  Serious: No
  Sender: Public
  Company Number: None

PATIENT
  Age: 47 Year
  Sex: Female
  Weight: 97 kg

DRUGS (4)
  1. MAVENCLAD [Suspect]
     Active Substance: CLADRIBINE
     Indication: Multiple sclerosis
     Dosage: FREQUENCY : DAILY;?
     Route: 048
     Dates: start: 20240814, end: 20240818
  2. MYRBETRIQ [Concomitant]
     Active Substance: MIRABEGRON
     Dates: start: 20240422
  3. vitamin d3 50,000 [Concomitant]
     Dates: start: 20240201
  4. FLUOXETINE HYDROCHLORIDE [Concomitant]
     Active Substance: FLUOXETINE HYDROCHLORIDE
     Dates: start: 20230727

REACTIONS (7)
  - Fatigue [None]
  - Muscular weakness [None]
  - Hypoaesthesia [None]
  - Hypoaesthesia [None]
  - Asthenia [None]
  - Fall [None]
  - Multiple sclerosis [None]

NARRATIVE: CASE EVENT DATE: 20240815
